FAERS Safety Report 10945292 (Version 1)
Quarter: 2015Q1

REPORT INFORMATION
  Report Type: Spontaneous
  Country: JP (occurrence: None)
  Receive Date: 20150319
  Receipt Date: 20150319
  Transmission Date: 20150721
  Serious: Yes (Hospitalization, Other)
  Sender: FDA-Public Use
  Company Number: 2015JUB00077

PATIENT
  Age: 63 Year
  Sex: Female

DRUGS (3)
  1. FLUNITRAZEPAM [Suspect]
     Active Substance: FLUNITRAZEPAM
     Indication: SCHIZOPHRENIA
     Dosage: 2 MG, 1X/DAY
     Dates: end: 2014
  2. OLANZAPINE. [Suspect]
     Active Substance: OLANZAPINE
     Indication: SCHIZOPHRENIA
     Dosage: 5 MG, 1X/DAY
     Dates: end: 2014
  3. SODIUM VALPROATE [Suspect]
     Active Substance: VALPROATE SODIUM
     Indication: SCHIZOPHRENIA
     Dosage: 400 MG, 1X/DAY
     Dates: end: 2014

REACTIONS (12)
  - Neuroleptic malignant syndrome [None]
  - Dysstasia [None]
  - Muscle rigidity [None]
  - Electrocardiogram QT prolonged [None]
  - Delirium [None]
  - Electrocardiogram J wave [None]
  - Respiratory disorder [None]
  - Rhabdomyolysis [None]
  - Blood potassium decreased [None]
  - Hypothermia [None]
  - Sinus bradycardia [None]
  - Pneumonia aspiration [None]

NARRATIVE: CASE EVENT DATE: 201402
